FAERS Safety Report 4736378-9 (Version None)
Quarter: 2005Q3

REPORT INFORMATION
  Report Type: 
  Country: None (occurrence: None)
  Receive Date: 20050808
  Receipt Date: 20050727
  Transmission Date: 20060218
  Serious: Yes (Life-Threatening)
  Sender: FDA-Public Use
  Company Number: TR-JNJFOC-20050705681

PATIENT
  Age: 51 Year
  Sex: Female
  Weight: 85 kg

DRUGS (3)
  1. REMICADE [Suspect]
     Indication: RHEUMATOID ARTHRITIS
     Route: 042
  2. ARAVA [Concomitant]
     Route: 048
  3. DELTACORTRIL [Concomitant]
     Route: 048

REACTIONS (6)
  - BACK PAIN [None]
  - CYANOSIS [None]
  - HYPOTENSION [None]
  - INFUSION RELATED REACTION [None]
  - PULSE ABSENT [None]
  - RESPIRATORY RATE INCREASED [None]
